FAERS Safety Report 16988725 (Version 3)
Quarter: 2019Q4

REPORT INFORMATION
  Report Type: Spontaneous
  Country: PT (occurrence: FR)
  Receive Date: 20191104
  Receipt Date: 20191223
  Transmission Date: 20200122
  Serious: Yes (Other)
  Sender: FDA-Public Use
  Company Number: PT-SUNOVION-2019SUN004708

PATIENT

DRUGS (11)
  1. FYCOMPA [Suspect]
     Active Substance: PERAMPANEL
     Dosage: 6 MILLIGRAM, DAIL
     Route: 048
  2. FYCOMPA [Suspect]
     Active Substance: PERAMPANEL
     Dosage: 2 MILLIGRAM, DAILY
     Route: 048
     Dates: start: 201910, end: 20191015
  3. FYCOMPA [Suspect]
     Active Substance: PERAMPANEL
     Dosage: 8 OR 10 MG DAILY
     Route: 048
  4. FYCOMPA [Suspect]
     Active Substance: PERAMPANEL
     Dosage: 4 MILLIGRAM, DAILY
     Route: 048
  5. ZEBINIX [Suspect]
     Active Substance: ESLICARBAZEPINE ACETATE
     Indication: PARTIAL SEIZURES
     Dosage: 2 DOSAGE FORM, DAILY
     Route: 048
  6. FYCOMPA [Suspect]
     Active Substance: PERAMPANEL
     Indication: PARTIAL SEIZURES
     Dosage: 6 MILLIGRAM, DAILY
     Route: 048
     Dates: start: 2019
  7. FYCOMPA [Suspect]
     Active Substance: PERAMPANEL
     Dosage: 2 MILLIGRAM, DAILY
     Route: 048
  8. URBANYL [Concomitant]
     Active Substance: CLOBAZAM
     Indication: PARTIAL SEIZURES
  9. FYCOMPA [Suspect]
     Active Substance: PERAMPANEL
     Dosage: 4 MILLIGRAM, DAILY
     Route: 048
     Dates: start: 20191016, end: 2019
  10. KEPPRA [Suspect]
     Active Substance: LEVETIRACETAM
     Indication: PARTIAL SEIZURES
     Dosage: 1000 MILLIGRAM, DAILY
     Route: 065
  11. RIVOTRIL [Concomitant]
     Active Substance: CLONAZEPAM
     Indication: PARTIAL SEIZURES

REACTIONS (5)
  - Seizure [Recovering/Resolving]
  - Overdose [Unknown]
  - Status epilepticus [Recovering/Resolving]
  - Generalised tonic-clonic seizure [Recovering/Resolving]
  - Drug ineffective [Unknown]
